FAERS Safety Report 4391279-3 (Version None)
Quarter: 2004Q2

REPORT INFORMATION
  Report Type: 
  Country: None (occurrence: None)
  Receive Date: 20040621
  Receipt Date: 20031015
  Transmission Date: 20050107
  Serious: Yes (Other)
  Sender: FDA-Public Use
  Company Number: USA-2003-0006218

PATIENT
  Age: 46 Year
  Sex: Male

DRUGS (8)
  1. OXYCONTIN [Suspect]
     Dosage: 20 MG, BID, ORAL
     Route: 048
  2. ULTRAM [Concomitant]
  3. CELEBREX [Concomitant]
  4. BUSPAR [Concomitant]
  5. ASPIRIN [Concomitant]
  6. NORVASC [Concomitant]
  7. LIPITOR [Concomitant]
  8. IBUPROFEN [Concomitant]

REACTIONS (12)
  - ANXIETY [None]
  - ARTHRALGIA [None]
  - ASTHENIA [None]
  - DEPRESSION [None]
  - DRUG DEPENDENCE [None]
  - DRUG WITHDRAWAL SYNDROME [None]
  - HEADACHE [None]
  - INSOMNIA [None]
  - NAUSEA [None]
  - PAIN [None]
  - STRESS SYMPTOMS [None]
  - UPPER RESPIRATORY TRACT INFECTION [None]
